FAERS Safety Report 25271370 (Version 1)
Quarter: 2025Q2

REPORT INFORMATION
  Report Type: Spontaneous
  Country: IT (occurrence: IT)
  Receive Date: 20250506
  Receipt Date: 20250506
  Transmission Date: 20250717
  Serious: Yes (Hospitalization, Other)
  Sender: WAYLIS THERAPEUTICS LLC
  Company Number: IT-WT-2025-02487

PATIENT
  Age: 5 Year
  Sex: Male

DRUGS (2)
  1. BUSULFAN [Suspect]
     Active Substance: BUSULFAN
     Indication: Bone marrow conditioning regimen
     Route: 065
  2. MELPHALAN [Concomitant]
     Active Substance: MELPHALAN
     Indication: Bone marrow conditioning regimen
     Route: 065

REACTIONS (2)
  - Pulmonary arterial hypertension [Recovering/Resolving]
  - Cardiac failure chronic [Recovering/Resolving]
